FAERS Safety Report 14397319 (Version 1)
Quarter: 2018Q1

REPORT INFORMATION
  Report Type: Spontaneous
  Country: US (occurrence: US)
  Receive Date: 20180116
  Receipt Date: 20180116
  Transmission Date: 20180509
  Serious: No
  Sender: FDA-Public Use
  Company Number: US-ALLERGAN-1733740US

PATIENT
  Sex: Female
  Weight: 49.89 kg

DRUGS (2)
  1. BOTOX COSMETIC [Suspect]
     Active Substance: ONABOTULINUMTOXINA
     Indication: SKIN WRINKLING
     Dosage: 57 UNITS, SINGLE
     Route: 030
     Dates: start: 20170708, end: 20170708
  2. BOTOX COSMETIC [Suspect]
     Active Substance: ONABOTULINUMTOXINA
     Dosage: 60 UNK, UNK
     Route: 030
     Dates: start: 20170724, end: 20170724

REACTIONS (1)
  - Drug ineffective [Unknown]
